FAERS Safety Report 17868473 (Version 2)
Quarter: 2020Q3

REPORT INFORMATION
  Report Type: Spontaneous
  Country: JP (occurrence: JP)
  Receive Date: 20200606
  Receipt Date: 20200818
  Transmission Date: 20201103
  Serious: Yes (Other)
  Sender: FDA-Public Use
  Company Number: JP-ACCORD-184201

PATIENT
  Age: 83 Year
  Sex: Female

DRUGS (2)
  1. RAMOSETRON [Concomitant]
     Active Substance: RAMOSETRON HYDROCHLORIDE
  2. AZACITIDINE. [Suspect]
     Active Substance: AZACITIDINE
     Indication: MYELODYSPLASTIC SYNDROME
     Dosage: AFTER THE SECOND AND THIRD CYCLES
     Route: 058

REACTIONS (3)
  - Intestinal ulcer [Recovered/Resolved]
  - Enterocolitis haemorrhagic [Unknown]
  - Myelosuppression [Unknown]
